FAERS Safety Report 15383897 (Version 1)
Quarter: 2018Q3

REPORT INFORMATION
  Report Type: Spontaneous
  Country: US (occurrence: US)
  Receive Date: 20180914
  Receipt Date: 20180914
  Transmission Date: 20181010
  Serious: No
  Sender: FDA-Public Use
  Company Number: US-JNJFOC-20180843664

PATIENT
  Sex: Male

DRUGS (4)
  1. IMBRUVICA [Suspect]
     Active Substance: IBRUTINIB
     Indication: MANTLE CELL LYMPHOMA
     Dates: start: 201804
  2. IMBRUVICA [Suspect]
     Active Substance: IBRUTINIB
     Indication: MANTLE CELL LYMPHOMA
     Route: 048
     Dates: start: 201706
  3. ASPIRIN. [Concomitant]
     Active Substance: ASPIRIN
  4. METOPROLOL TARTRATE. [Concomitant]
     Active Substance: METOPROLOL TARTRATE

REACTIONS (1)
  - Drug dose omission [Unknown]
